FAERS Safety Report 17364692 (Version 1)
Quarter: 2020Q1

REPORT INFORMATION
  Report Type: Spontaneous
  Country: IT (occurrence: IT)
  Receive Date: 20200204
  Receipt Date: 20200204
  Transmission Date: 20200409
  Serious: Yes (Death, Hospitalization, Other)
  Sender: FDA-Public Use
  Company Number: IT-VISTAPHARM, INC.-VER202001-000217

PATIENT
  Age: 40 Year
  Sex: Male

DRUGS (23)
  1. HALOPERIDOL. [Suspect]
     Active Substance: HALOPERIDOL
     Dosage: 5 MG (AT DAY 4 AT 8:00 PM
     Route: 048
  2. MIDAZOLAM HYDROCHLORIDE. [Suspect]
     Active Substance: MIDAZOLAM HYDROCHLORIDE
     Indication: AGITATION
     Dosage: 15 MG (DAY 1 AT 1;00 PM)
     Route: 042
  3. DELORAZEPAM [Suspect]
     Active Substance: DELORAZEPAM
     Indication: PRODUCT USED FOR UNKNOWN INDICATION
     Dosage: DAY 1 AT 8:00 PM
     Route: 042
  4. HALOPERIDOL. [Suspect]
     Active Substance: HALOPERIDOL
     Dosage: 5 MG (DAY 5 AT 8:00 AM AND 8:00 PM)
     Route: 048
  5. CLOZAPINE. [Suspect]
     Active Substance: CLOZAPINE
     Dosage: 200 MG (ON DAY 4 (8:00 AM)
     Route: 048
  6. CLOZAPINE. [Suspect]
     Active Substance: CLOZAPINE
     Dosage: 100 MG (ON DAY 4 (1:00 PM AND 8:00 PM)
     Route: 048
  7. CLOZAPINE. [Suspect]
     Active Substance: CLOZAPINE
     Dosage: 100 MG (ON DAY 5; (AT 1:00 PM AND 8:00 PM)
     Route: 048
  8. VALPROIC ACID. [Suspect]
     Active Substance: VALPROIC ACID
     Indication: AFFECTIVE DISORDER
     Dosage: DAY 1 NIGHT AND DAY 2 AT 8:00 PM
     Route: 048
  9. MIDAZOLAM HYDROCHLORIDE. [Suspect]
     Active Substance: MIDAZOLAM HYDROCHLORIDE
     Dosage: 5 MG (DAY 1 AT NIGHT)
     Route: 042
  10. CHLORPROMAZINE. [Suspect]
     Active Substance: CHLORPROMAZINE
     Indication: PRODUCT USED FOR UNKNOWN INDICATION
     Dosage: 5 MG (DAY 1 AT 8:00 PM)
     Route: 042
  11. CLOZAPINE. [Suspect]
     Active Substance: CLOZAPINE
     Indication: BIPOLAR I DISORDER
     Dosage: 100 MG (DAY 2 AT 8:00 PM)
     Route: 048
  12. HALOPERIDOL. [Suspect]
     Active Substance: HALOPERIDOL
     Indication: AGITATION
     Dosage: 15 MG (DAY 1 AT 1:00 PM)
     Route: 042
  13. DELORAZEPAM [Suspect]
     Active Substance: DELORAZEPAM
     Dosage: DAY 3, 4 AT NIGHT
     Route: 048
  14. CLOTIAPINE [Suspect]
     Active Substance: CLOTHIAPINE
     Indication: PRODUCT USED FOR UNKNOWN INDICATION
     Dosage: 40 MG (DAY 1 AT NIGHT, DAY 2 AT 8:00 PM)
     Route: 030
  15. DELORAZEPAM [Suspect]
     Active Substance: DELORAZEPAM
     Dosage: DAY 5 AT 1: 00 PM AND AT NIGHT
     Route: 048
  16. CLOTIAPINE [Suspect]
     Active Substance: CLOTHIAPINE
     Dosage: 40 MG (DAY 3 AT 8:00 AM, 1:00 PM, 8:00 PM)
     Route: 030
  17. VALPROIC ACID. [Suspect]
     Active Substance: VALPROIC ACID
     Dosage: DAY 3, 4 AND 5 AT 8:00 AM, 1:00 PM AND 8:00 PM
     Route: 048
  18. CHLORPHENIRAMINE. [Suspect]
     Active Substance: CHLORPHENIRAMINE
     Indication: PRODUCT USED FOR UNKNOWN INDICATION
     Dosage: 10 MG
     Route: 042
  19. CHLORPHENIRAMINE. [Suspect]
     Active Substance: CHLORPHENIRAMINE
     Dosage: 50 MG
     Route: 030
  20. PROMAZINE [Suspect]
     Active Substance: PROMAZINE
     Indication: PRODUCT USED FOR UNKNOWN INDICATION
     Dosage: 60 MG (AT DAY 3, 4 AND 5)
     Route: 048
  21. CLOZAPINE. [Suspect]
     Active Substance: CLOZAPINE
     Dosage: 100 MG (DAY 3 AT 8:00 AM, 1:00 PM AND 8:00 PM)
     Route: 048
  22. CLOZAPINE. [Suspect]
     Active Substance: CLOZAPINE
     Dosage: 200 MG (ON DAY 5, AT 8:00 AM)
     Route: 048
  23. CHLORPROMAZINE. [Suspect]
     Active Substance: CHLORPROMAZINE
     Dosage: 50 MG
     Route: 030

REACTIONS (5)
  - Cardiac arrest [Fatal]
  - Head injury [Unknown]
  - Product use in unapproved indication [Unknown]
  - Sudden death [Fatal]
  - Fall [Unknown]
